FAERS Safety Report 6656514-7 (Version None)
Quarter: 2010Q1

REPORT INFORMATION
  Report Type: 
  Country: None (occurrence: None)
  Receive Date: 20100329
  Receipt Date: 20100322
  Transmission Date: 20100710
  Serious: Yes (Hospitalization)
  Sender: FDA-Public Use
  Company Number: US-PURDUE-USA-2010-0042894

PATIENT
  Sex: Female

DRUGS (1)
  1. OXYCONTIN [Suspect]
     Indication: CANCER PAIN
     Dosage: 80 MG, Q8H
     Route: 048

REACTIONS (2)
  - MALIGNANT NEOPLASM PROGRESSION [None]
  - PAIN [None]
